FAERS Safety Report 10106993 (Version 2)
Quarter: 2014Q3

REPORT INFORMATION
  Report Type: Other
  Country: US (occurrence: US)
  Receive Date: 20140424
  Receipt Date: 20140714
  Transmission Date: 20150326
  Serious: Yes (Hospitalization, Other)
  Sender: FDA-Public Use
  Company Number: US-GSKPPD-2014GSK002219

PATIENT
  Age: 56 Year
  Sex: Male

DRUGS (5)
  1. TENORMIN [Concomitant]
     Active Substance: ATENOLOL
     Route: 048
     Dates: start: 200402
  2. ALTACE [Concomitant]
     Active Substance: RAMIPRIL
     Route: 048
     Dates: start: 200402
  3. BUMEX [Concomitant]
     Active Substance: BUMETANIDE
     Route: 048
     Dates: start: 200402
  4. BABY ASPIRIN [Concomitant]
     Active Substance: ASPIRIN
     Route: 048
     Dates: start: 200402
  5. AVANDIA [Suspect]
     Active Substance: ROSIGLITAZONE MALEATE
     Indication: DIABETES MELLITUS
     Route: 048
     Dates: start: 2002, end: 2003

REACTIONS (2)
  - Coronary artery disease [Recovered/Resolved]
  - Myocardial infarction [None]

NARRATIVE: CASE EVENT DATE: 20040209
